FAERS Safety Report 7299258-3 (Version None)
Quarter: 2011Q1

REPORT INFORMATION
  Report Type: 
  Country: None (occurrence: None)
  Receive Date: 20110217
  Receipt Date: 20110211
  Transmission Date: 20110831
  Serious: Yes (Other)
  Sender: FDA-Public Use
  Company Number: CA-MERCK-1102USA01600

PATIENT
  Sex: Female

DRUGS (2)
  1. FOSAMAX [Suspect]
     Route: 048
  2. ACTONEL [Suspect]
     Route: 048

REACTIONS (10)
  - SPEECH DISORDER [None]
  - LYMPHADENOPATHY [None]
  - THROAT IRRITATION [None]
  - COUGH [None]
  - VOMITING [None]
  - INCREASED UPPER AIRWAY SECRETION [None]
  - EAR DISORDER [None]
  - ORAL DISCHARGE [None]
  - ABDOMINAL PAIN LOWER [None]
  - THYROID NEOPLASM [None]
